FAERS Safety Report 6879561-9 (Version None)
Quarter: 2010Q3

REPORT INFORMATION
  Report Type: 
  Country: None (occurrence: None)
  Receive Date: 20100728
  Receipt Date: 20100202
  Transmission Date: 20110219
  Serious: Yes (Other)
  Sender: FDA-Public Use
  Company Number: US-BAYER-200940173NA

PATIENT
  Age: 47 Year
  Sex: Male
  Weight: 76 kg

DRUGS (16)
  1. MAGNEVIST [Suspect]
     Indication: NUCLEAR MAGNETIC RESONANCE IMAGING
  2. OMNISCAN [Suspect]
     Indication: NUCLEAR MAGNETIC RESONANCE IMAGING
  3. OPTIMARK [Suspect]
     Indication: NUCLEAR MAGNETIC RESONANCE IMAGING
  4. MULTIHANCE [Suspect]
     Indication: NUCLEAR MAGNETIC RESONANCE IMAGING
  5. UNSPECIFIED GBCA [Suspect]
     Indication: ARTHROGRAM
     Dates: start: 20070823, end: 20070823
  6. ASPIRIN [Concomitant]
     Dates: start: 20040101, end: 20090101
  7. FUROSEMIDE [Concomitant]
     Dates: start: 20080101, end: 20090101
  8. LISINOPRIL [Concomitant]
     Dates: start: 19860101, end: 20090101
  9. METOPROLOL TARTRATE [Concomitant]
     Dates: start: 20080101, end: 20090101
  10. LOPRESSOR [Concomitant]
     Dates: start: 20040101, end: 20080101
  11. SULAR [Concomitant]
     Dates: start: 19860101, end: 20090101
  12. ZOLOFT [Concomitant]
     Dates: start: 19860101, end: 20090101
  13. LIPITOR [Concomitant]
  14. CELEBREX [Concomitant]
  15. PREDNISONE [Concomitant]
     Dates: start: 20080101
  16. HUMULIN 70/30 [Concomitant]

REACTIONS (17)
  - ARTHRALGIA [None]
  - DEFORMITY [None]
  - DEPRESSION [None]
  - ERYTHEMA [None]
  - FIBROSIS [None]
  - GENERAL PHYSICAL HEALTH DETERIORATION [None]
  - JOINT STIFFNESS [None]
  - JOINT SWELLING [None]
  - NEPHROGENIC SYSTEMIC FIBROSIS [None]
  - NERVOUSNESS [None]
  - OEDEMA PERIPHERAL [None]
  - PAIN [None]
  - SCAR [None]
  - SKIN FIBROSIS [None]
  - SKIN HYPERTROPHY [None]
  - SKIN INDURATION [None]
  - SKIN TIGHTNESS [None]
